FAERS Safety Report 8348639-5 (Version None)
Quarter: 2012Q2

REPORT INFORMATION
  Report Type: 
  Country: None (occurrence: None)
  Receive Date: 20120510
  Receipt Date: 20120501
  Transmission Date: 20120825
  Serious: No
  Sender: FDA-Public Use
  Company Number: US-BIOGENIDEC-2012BI015133

PATIENT
  Sex: Female

DRUGS (3)
  1. AVONEX [Suspect]
     Indication: MULTIPLE SCLEROSIS
     Route: 030
  2. AVONEX [Suspect]
     Route: 030
     Dates: start: 20020425, end: 20040103
  3. AVONEX [Suspect]
     Route: 030
     Dates: start: 20110622

REACTIONS (6)
  - HEMIPLEGIA [None]
  - LIMB ASYMMETRY [None]
  - MULTIPLE FRACTURES [None]
  - STRESS [None]
  - BIPOLAR DISORDER [None]
  - MUSCULAR WEAKNESS [None]
